FAERS Safety Report 9100208 (Version 2)
Quarter: 2013Q1

REPORT INFORMATION
  Report Type: Spontaneous
  Country: JP (occurrence: JP)
  Receive Date: 20130214
  Receipt Date: 20130306
  Transmission Date: 20140127
  Serious: Yes (Other)
  Sender: FDA-Public Use
  Company Number: JP-JNJFOC-20130206431

PATIENT
  Age: 72 Year
  Sex: Male

DRUGS (2)
  1. TRAMCET [Suspect]
     Indication: PROCEDURAL PAIN
     Dosage: 1 PER DAY
     Route: 048
  2. TRAMCET [Suspect]
     Indication: PROCEDURAL PAIN
     Dosage: 1 PER DAY
     Route: 048

REACTIONS (1)
  - Hepatic function abnormal [Recovering/Resolving]
